FAERS Safety Report 5636488-8 (Version None)
Quarter: 2008Q1

REPORT INFORMATION
  Report Type: 
  Country: None (occurrence: None)
  Receive Date: 20080225
  Receipt Date: 20080214
  Transmission Date: 20080703
  Serious: Yes (Hospitalization)
  Sender: FDA-Public Use
  Company Number: FR-ELI_LILLY_AND_COMPANY-FR200801001483

PATIENT
  Age: 79 Year
  Sex: Female

DRUGS (9)
  1. FORTEO [Suspect]
     Indication: OSTEOPOROSIS
     Dosage: 20 UG, DAILY (1/D)
     Route: 058
     Dates: start: 20070204
  2. FOSINOPRIL SODIUM AND HYDROCHLOROTHIAZIDE [Concomitant]
  3. AMLOR [Concomitant]
  4. VASTAREL [Concomitant]
  5. KARDEGIC [Concomitant]
  6. DIGOXIN [Concomitant]
  7. BURINEX [Concomitant]
  8. CORDARONE [Concomitant]
  9. RISORDAN [Concomitant]

REACTIONS (1)
  - LUNG DISORDER [None]
